FAERS Safety Report 10381197 (Version 4)
Quarter: 2014Q4

REPORT INFORMATION
  Report Type: Report from Study
  Country: IT (occurrence: IT)
  Receive Date: 20140813
  Receipt Date: 20141105
  Transmission Date: 20150528
  Serious: Yes (Hospitalization)
  Sender: FDA-Public Use
  Company Number: IT-ROCHE-1446165

PATIENT
  Age: 76 Year
  Sex: Female

DRUGS (9)
  1. ACETAMINOPHEN AND CODEINE [Concomitant]
     Active Substance: ACETAMINOPHEN\CODEINE PHOSPHATE
     Route: 065
     Dates: start: 20140104, end: 20140221
  2. PERTUZUMAB [Suspect]
     Active Substance: PERTUZUMAB
     Dosage: MAINTAINENCE DOSE?DATE OF LAST DOSE PRIOR TO SAE: 30/MAY/2014
     Route: 042
     Dates: start: 20131227, end: 20140718
  3. TRASTUZUMAB [Suspect]
     Active Substance: TRASTUZUMAB
     Dosage: MAINTAINANCE DOSE?DATE OF LAST DOSE PRIOR TO SAE: 30/MAY/2014
     Route: 042
     Dates: start: 20131227, end: 20140718
  4. PERTUZUMAB [Suspect]
     Active Substance: PERTUZUMAB
     Indication: HER-2 POSITIVE BREAST CANCER
     Dosage: LOADING DOSE, AS PER PROTOCOL, DAY 1 OF CYCLE 1
     Route: 042
     Dates: start: 20131206
  5. DOCETAXEL. [Suspect]
     Active Substance: DOCETAXEL
     Indication: HER-2 POSITIVE BREAST CANCER
     Dosage: LAST DOSE PRIOR TO PERICARDIAL EFFUSION: 21/FEB/2014.
     Route: 042
     Dates: start: 20131206, end: 20140221
  6. PREDNISONE. [Concomitant]
     Active Substance: PREDNISONE
     Route: 065
     Dates: start: 20140110
  7. TRASTUZUMAB [Suspect]
     Active Substance: TRASTUZUMAB
     Indication: HER-2 POSITIVE BREAST CANCER
     Dosage: LOADING DOSE, DAY 1 OF CYCLE 1, AS PER PROTOCOL
     Route: 042
     Dates: start: 20131206
  8. PROTON PUMP INHIBITOR (UNK INGREDIENTS) [Concomitant]
     Route: 065
     Dates: start: 20140131
  9. OXYCODONE [Concomitant]
     Active Substance: OXYCODONE
     Route: 065
     Dates: start: 20140110

REACTIONS (1)
  - Pericardial effusion [Recovered/Resolved]

NARRATIVE: CASE EVENT DATE: 20140630
